FAERS Safety Report 6468829-6 (Version None)
Quarter: 2009Q4

REPORT INFORMATION
  Report Type: 
  Country: None (occurrence: None)
  Receive Date: 20091203
  Receipt Date: 20071113
  Transmission Date: 20100525
  Serious: Yes (Hospitalization)
  Sender: FDA-Public Use
  Company Number: US-ELI_LILLY_AND_COMPANY-US200611001356

PATIENT
  Sex: Male

DRUGS (9)
  1. FORTEO [Suspect]
     Indication: OSTEOPOROSIS
     Dosage: 20 UG, DAILY (1/D)
     Dates: start: 20060901, end: 20070101
  2. FORTEO [Suspect]
     Dates: start: 20070601, end: 20070101
  3. FORTEO [Suspect]
     Dates: start: 20070815
  4. VYTORIN [Concomitant]
  5. SERAX [Concomitant]
  6. NEXIUM [Concomitant]
  7. TARKA [Concomitant]
  8. ALBUTEROL [Concomitant]
  9. ATROVENT [Concomitant]

REACTIONS (16)
  - ACCIDENTAL OVERDOSE [None]
  - ASTHMA [None]
  - CHILLS [None]
  - COUGH [None]
  - DYSPNOEA [None]
  - FEELING ABNORMAL [None]
  - HEAD DISCOMFORT [None]
  - LUNG DISORDER [None]
  - LUNG INFECTION [None]
  - MALAISE [None]
  - MEDICATION ERROR [None]
  - MOBILITY DECREASED [None]
  - PSEUDOMONAS INFECTION [None]
  - RESPIRATORY DISORDER [None]
  - SPINAL FRACTURE [None]
  - STAPHYLOCOCCAL INFECTION [None]
